FAERS Safety Report 26157562 (Version 1)
Quarter: 2025Q4

REPORT INFORMATION
  Report Type: Spontaneous
  Country: JP (occurrence: JP)
  Receive Date: 20251215
  Receipt Date: 20251215
  Transmission Date: 20260118
  Serious: Yes (Other)
  Sender: DAIICHI
  Company Number: JP-DSJP-DS-2025-181210-JP

PATIENT
  Age: 6 Decade
  Sex: Female

DRUGS (1)
  1. DATROWAY [Suspect]
     Active Substance: DATOPOTAMAB DERUXTECAN-DLNK
     Indication: Hormone receptor positive HER2 negative breast cancer
     Dosage: 6 MG/KG, ONCE EVERY 3 WK
     Route: 041
     Dates: start: 20250725, end: 20251114

REACTIONS (2)
  - Metastases to lung [Not Recovered/Not Resolved]
  - Metastases to pleura [Not Recovered/Not Resolved]

NARRATIVE: CASE EVENT DATE: 20251202
